FAERS Safety Report 9209542 (Version 1)
Quarter: 2013Q2

REPORT INFORMATION
  Report Type: Other
  Country: ES (occurrence: ES)
  Receive Date: 20130404
  Receipt Date: 20130404
  Transmission Date: 20140414
  Serious: No
  Sender: FDA-Public Use
  Company Number: ES-US-EMD SERONO, INC.-7201705

PATIENT
  Age: 55 Year
  Sex: Female

DRUGS (2)
  1. INTERFERON BETA-1A [Suspect]
     Indication: RELAPSING-REMITTING MULTIPLE SCLEROSIS
     Route: 030
     Dates: start: 2001
  2. INTERFERON BETA-1A [Suspect]
     Route: 058
     Dates: end: 2008

REACTIONS (1)
  - Neutralising antibodies positive [Unknown]
